FAERS Safety Report 24176129 (Version 1)
Quarter: 2024Q3

REPORT INFORMATION
  Report Type: Spontaneous
  Country: JP (occurrence: JP)
  Receive Date: 20240806
  Receipt Date: 20240806
  Transmission Date: 20241016
  Serious: Yes (Hospitalization)
  Sender: SANDOZ
  Company Number: JP-asahikaseip-2024-AER-00856

PATIENT

DRUGS (2)
  1. ELDECALCITOL [Suspect]
     Active Substance: ELDECALCITOL
     Indication: Product used for unknown indication
     Dosage: UNK
     Route: 065
  2. RECLAST [Suspect]
     Active Substance: ZOLEDRONIC ACID
     Indication: Product used for unknown indication
     Dosage: 5 MG, Q12MO (INJECTION) ROUTE OF ADMIN (FREE TEXT): INTRAVENOUS DRIP
     Route: 041
     Dates: start: 2023

REACTIONS (3)
  - Hypercalcaemia [Unknown]
  - White blood cell count decreased [Unknown]
  - Renal failure [Unknown]
